FAERS Safety Report 5018960-7 (Version None)
Quarter: 2006Q2

REPORT INFORMATION
  Report Type: 
  Country: None (occurrence: None)
  Receive Date: 20060531
  Receipt Date: 20060522
  Transmission Date: 20061013
  Serious: Yes (Hospitalization)
  Sender: FDA-Public Use
  Company Number: WAES 0605USA04106

PATIENT
  Age: 63 Year
  Sex: Male

DRUGS (33)
  1. FOSAMAX [Suspect]
     Indication: OSTEOPOROSIS
     Dosage: 5 MG/DAILY/PO
     Route: 048
     Dates: start: 20041101, end: 20050905
  2. ENBREL [Suspect]
     Indication: RHEUMATOID ARTHRITIS
     Dosage: SEE IMAGE
     Route: 058
     Dates: start: 20050713, end: 20050929
  3. ENBREL [Suspect]
     Indication: RHEUMATOID ARTHRITIS
     Dosage: SEE IMAGE
     Route: 058
     Dates: start: 20051006, end: 20051016
  4. ENBREL [Suspect]
     Indication: RHEUMATOID ARTHRITIS
     Dosage: SEE IMAGE
     Route: 058
     Dates: start: 20051020, end: 20051031
  5. ENBREL [Suspect]
     Indication: RHEUMATOID ARTHRITIS
     Dosage: SEE IMAGE
     Route: 058
     Dates: start: 20051202, end: 20051222
  6. BUCILLAMINE 100 MG [Suspect]
     Dosage: 100 MG/DAILY/PO
     Route: 048
     Dates: start: 20041130, end: 20050905
  7. LANSOPRAZOLE [Suspect]
     Dosage: 15 MG/DAILY/PO
     Route: 048
     Dates: end: 20050907
  8. SODIUM ALGINATE [Suspect]
     Dosage: 60 ML/DAILY
     Dates: start: 20050201, end: 20050905
  9. ETODOLAC [Suspect]
     Dosage: 400 MG/DAILY
     Dates: start: 20050225, end: 20050905
  10. VOGLIBOSE [Suspect]
     Dosage: 0.6MG/DAILY
     Dates: start: 20050324, end: 20050905
  11. SULFAMETHOXAZOLE + TRIMETHOPRIM [Suspect]
     Dosage: 1 DOSE/DAILY
     Dates: end: 20050901
  12. ISONIAZID [Suspect]
     Indication: ANTIBIOTIC PROPHYLAXIS
     Dosage: 300 MG/DAILY
     Dates: start: 20041201, end: 20050901
  13. SUCRALFATE [Suspect]
     Dosage: 3 GM/DAILY
     Dates: end: 20050905
  14. RABEPRAZOLE SODIUM [Suspect]
     Dates: start: 20050907
  15. FERROUS CITRATE [Suspect]
     Dates: end: 20050901
  16. AZELASTINE HYDROCHLORIDE [Concomitant]
  17. CALCIPOTRIENE [Concomitant]
  18. CROTAMITON [Concomitant]
  19. DEXCHLORPHENIRAMINE MALEATE [Concomitant]
  20. DIFLUPREDNATE [Concomitant]
  21. DIPHENHYDRAMINE HYDROCHLORIDE [Concomitant]
  22. GENTAMICIN SULFATE [Concomitant]
  23. HOMOCHLORCYCLIZINE [Concomitant]
  24. HYDROXYZINE HYDROCHLORIDE [Concomitant]
  25. INDOMETHACIN [Concomitant]
  26. LOXOPROFEN SODIUM [Concomitant]
  27. MELOXICAM [Concomitant]
  28. NADIFLOXACIN [Concomitant]
  29. NIFENAZONE [Concomitant]
  30. OLOPATADINE HYDROCHLORIDE [Concomitant]
  31. PREDNISOLONE [Concomitant]
  32. REBAMIPIDE [Concomitant]
  33. TACALCITOL [Concomitant]

REACTIONS (2)
  - ERYTHEMA MULTIFORME [None]
  - FALSE POSITIVE LABORATORY RESULT [None]
